FAERS Safety Report 23982015 (Version 5)
Quarter: 2024Q3

REPORT INFORMATION
  Report Type: Spontaneous
  Country: CA (occurrence: CA)
  Receive Date: 20240617
  Receipt Date: 20240723
  Transmission Date: 20241016
  Serious: Yes (Other)
  Sender: JOHNSON AND JOHNSON
  Company Number: CA-JNJFOC-20240630701

PATIENT
  Age: 52 Year
  Sex: Female

DRUGS (13)
  1. STELARA [Suspect]
     Active Substance: USTEKINUMAB
     Indication: Product used for unknown indication
     Route: 058
  2. REMICADE [Suspect]
     Active Substance: INFLIXIMAB
     Indication: Product used for unknown indication
     Route: 041
  3. ENBREL [Suspect]
     Active Substance: BENZYL ALCOHOL\ETANERCEPT
     Indication: Product used for unknown indication
     Route: 065
  4. ENTYVIO [Suspect]
     Active Substance: VEDOLIZUMAB
     Indication: Crohn^s disease
     Route: 042
  5. HUMIRA [Suspect]
     Active Substance: ADALIMUMAB
     Indication: Product used for unknown indication
     Route: 058
  6. AMOXICILLIN [Concomitant]
     Active Substance: AMOXICILLIN
  7. CALCIUM [Concomitant]
     Active Substance: CALCIUM
  8. CEFIXIME [Concomitant]
     Active Substance: CEFIXIME
  9. HYDROMORPHONE [Concomitant]
     Active Substance: HYDROMORPHONE
  10. LORAZEPAM [Concomitant]
     Active Substance: LORAZEPAM
  11. PREDNISONE [Concomitant]
     Active Substance: PREDNISONE
  12. SULFATE DE FERROUS [Concomitant]
  13. IRON [Concomitant]
     Active Substance: IRON

REACTIONS (2)
  - Crohn^s disease [Unknown]
  - Treatment failure [Unknown]
